FAERS Safety Report 19085710 (Version 1)
Quarter: 2021Q2

REPORT INFORMATION
  Report Type: Spontaneous
  Country: GB (occurrence: GB)
  Receive Date: 20210402
  Receipt Date: 20210402
  Transmission Date: 20210717
  Serious: Yes (Other)
  Sender: FDA-Public Use
  Company Number: GB-SUN PHARMACEUTICAL INDUSTRIES LTD-2021RR-288902

PATIENT
  Age: 91 Year
  Sex: Female
  Weight: 51 kg

DRUGS (4)
  1. CARBIMAZOLE [Concomitant]
     Active Substance: CARBIMAZOLE
     Indication: ILL-DEFINED DISORDER
     Dosage: 2 TABLETS EACH MORNING AS ADVISED
     Route: 065
     Dates: start: 20201102
  2. CODEINE [Suspect]
     Active Substance: CODEINE
     Indication: ILL-DEFINED DISORDER
     Dosage: UNK
     Route: 065
     Dates: start: 20210316
  3. FERROUS FUMARATE [Concomitant]
     Active Substance: FERROUS FUMARATE
     Indication: ILL-DEFINED DISORDER
     Dosage: TAKE ONE 3 TIMES A DAY FOR 3 MONTHS
     Route: 065
     Dates: start: 20200914, end: 20210114
  4. CODEINE PHOSPHATE [Concomitant]
     Active Substance: CODEINE PHOSPHATE
     Indication: ILL-DEFINED DISORDER
     Dosage: TAKE ONE OR TWO AT NIGHT WHEN NEEDED FOR PAIN
     Route: 065
     Dates: start: 20210315

REACTIONS (1)
  - Abdominal pain [Recovered/Resolved]

NARRATIVE: CASE EVENT DATE: 20210316
